FAERS Safety Report 23213782 (Version 1)
Quarter: 2023Q4

REPORT INFORMATION
  Report Type: Report from Study
  Country: US (occurrence: US)
  Receive Date: 20231121
  Receipt Date: 20231121
  Transmission Date: 20240109
  Serious: Yes (Other)
  Sender: FDA-Public Use
  Company Number: US-BAYER-2023A015113

PATIENT
  Age: 66 Year
  Sex: Female

DRUGS (2)
  1. COPANLISIB [Suspect]
     Active Substance: COPANLISIB
     Indication: Non-small cell lung cancer stage III
     Dosage: 60 MG, Q2WK
     Route: 042
     Dates: start: 20220608, end: 20221221
  2. DURVALUMAB [Suspect]
     Active Substance: DURVALUMAB
     Indication: Non-small cell lung cancer stage III
     Dosage: UNK
     Dates: start: 20220608, end: 20221221

REACTIONS (1)
  - Immune-mediated lung disease [Recovered/Resolved]

NARRATIVE: CASE EVENT DATE: 20230104
